FAERS Safety Report 23289423 (Version 1)
Quarter: 2023Q4

REPORT INFORMATION
  Report Type: Spontaneous
  Country: ES (occurrence: ES)
  Receive Date: 20231212
  Receipt Date: 20231212
  Transmission Date: 20240110
  Serious: Yes (Other)
  Sender: FDA-Public Use
  Company Number: None

PATIENT
  Age: 9 Year
  Sex: Female

DRUGS (3)
  1. CYCLOSPORINE [Suspect]
     Active Substance: CYCLOSPORINE
     Indication: Dermatitis atopic
     Dosage: 0.4 ML, Q12H
     Route: 048
     Dates: start: 20230921, end: 20231023
  2. CYCLOSPORINE [Suspect]
     Active Substance: CYCLOSPORINE
  3. ADVENTAN [Concomitant]
     Indication: Product used for unknown indication
     Dosage: 1 DOSAGE FORM, Q24H
     Route: 065
     Dates: start: 20230713

REACTIONS (1)
  - Breast inflammation [Recovered/Resolved]

NARRATIVE: CASE EVENT DATE: 20231019
